FAERS Safety Report 15887444 (Version 2)
Quarter: 2019Q1

REPORT INFORMATION
  Report Type: Spontaneous
  Country: JP (occurrence: JP)
  Receive Date: 20190130
  Receipt Date: 20190225
  Transmission Date: 20190417
  Serious: Yes (Other)
  Sender: FDA-Public Use
  Company Number: JP-TAKEDA-2019TUS003378

PATIENT
  Age: 6 Decade
  Sex: Male

DRUGS (1)
  1. BORTEZOMIB. [Suspect]
     Active Substance: BORTEZOMIB
     Indication: PLASMA CELL MYELOMA
     Dosage: 1.3 MILLIGRAM/SQ. METER, 3/WEEK
     Route: 058
     Dates: start: 20180815

REACTIONS (1)
  - Dacryoadenitis acquired [Recovering/Resolving]

NARRATIVE: CASE EVENT DATE: 20190117
